FAERS Safety Report 9523943 (Version 1)
Quarter: 2013Q1

REPORT INFORMATION
  Report Type: Spontaneous
  Country: US (occurrence: None)
  Receive Date: 20130305
  Receipt Date: 20130305
  Transmission Date: 20140127
  Serious: Yes (Other)
  Sender: FDA-Public Use
  Company Number: 163-21880-12063770

PATIENT
  Age: 54 Year
  Sex: Female
  Weight: 89.5 kg

DRUGS (1)
  1. REVLIMID [Suspect]
     Indication: PRODUCT USED FOR UNKNOWN INDICATION
     Dosage: 15 MG, 1 IN 1 D, PO
     Route: 048
     Dates: start: 201011

REACTIONS (2)
  - Platelet count decreased [None]
  - Neutropenia [None]
